FAERS Safety Report 5573251-0 (Version None)
Quarter: 2007Q4

REPORT INFORMATION
  Report Type: 
  Country: None (occurrence: None)
  Receive Date: 20071220
  Receipt Date: 20071217
  Transmission Date: 20080405
  Serious: Yes (Other)
  Sender: FDA-Public Use
  Company Number: 2007337789

PATIENT
  Sex: Male

DRUGS (1)
  1. ROGAINE [Suspect]
     Dosage: TOPICAL
     Route: 061
     Dates: start: 20071025

REACTIONS (6)
  - MIGRAINE [None]
  - RASH [None]
  - RENAL FAILURE [None]
  - SKIN IRRITATION [None]
  - SWELLING FACE [None]
  - WEIGHT INCREASED [None]
